FAERS Safety Report 5565840-4 (Version None)
Quarter: 2007Q4

REPORT INFORMATION
  Report Type: 
  Country: None (occurrence: None)
  Receive Date: 20071213
  Receipt Date: 20071129
  Transmission Date: 20080405
  Serious: Yes (Other)
  Sender: FDA-Public Use
  Company Number: 2007EU002666

PATIENT
  Age: 13 Year
  Sex: Female

DRUGS (1)
  1. PROTOPIC [Suspect]
     Indication: DERMATITIS ATOPIC
     Dosage: TOPICAL
     Route: 061

REACTIONS (4)
  - APPLICATION SITE REACTION [None]
  - LENTIGO [None]
  - LYMPHADENOPATHY [None]
  - MALIGNANT MELANOMA [None]
